FAERS Safety Report 6273982-3 (Version None)
Quarter: 2009Q3

REPORT INFORMATION
  Report Type: 
  Country: None (occurrence: None)
  Receive Date: 20090715
  Receipt Date: 20090703
  Transmission Date: 20100115
  Serious: Yes (Hospitalization)
  Sender: FDA-Public Use
  Company Number: TCI2009A02469

PATIENT
  Age: 77 Year
  Sex: Female

DRUGS (6)
  1. ACTOS [Suspect]
     Indication: TYPE 2 DIABETES MELLITUS
     Dosage: 30 MG (30 MG, 1 IN 1 D) PER ORAL; 15 MG (15 MG, 1 IN 1 D) PER ORAL
     Route: 048
     Dates: start: 20000301, end: 20090614
  2. ACTOS [Suspect]
     Indication: TYPE 2 DIABETES MELLITUS
     Dosage: 30 MG (30 MG, 1 IN 1 D) PER ORAL; 15 MG (15 MG, 1 IN 1 D) PER ORAL
     Route: 048
     Dates: start: 20090615, end: 20090630
  3. AMARYL [Concomitant]
  4. PRAVASTATIN [Concomitant]
  5. PLETAL [Concomitant]
  6. SULFONAMIDES, UREA DERIVATIVES [Concomitant]

REACTIONS (4)
  - FALL [None]
  - HUMERUS FRACTURE [None]
  - JOINT SWELLING [None]
  - SPINAL COMPRESSION FRACTURE [None]
